FAERS Safety Report 6644689-5 (Version None)
Quarter: 2010Q1

REPORT INFORMATION
  Report Type: 
  Country: None (occurrence: None)
  Receive Date: 20100322
  Receipt Date: 20100315
  Transmission Date: 20100710
  Serious: Yes (Death)
  Sender: FDA-Public Use
  Company Number: US-GILEAD-2010-0027734

PATIENT
  Sex: Female
  Weight: 50.848 kg

DRUGS (20)
  1. LETAIRIS [Suspect]
     Indication: PULMONARY ARTERIAL HYPERTENSION
     Route: 048
     Dates: start: 20091119
  2. HYDROCHLOROTHIAZIDE [Concomitant]
  3. VASOTEC [Concomitant]
  4. COREG [Concomitant]
  5. PATANOL [Concomitant]
  6. ALREX [Concomitant]
  7. PRAVACHOL [Concomitant]
  8. AMBIEN [Concomitant]
  9. PREMARIN [Concomitant]
  10. QUININE SULFATE [Concomitant]
  11. ADVAIR DISKUS 100/50 [Concomitant]
  12. RHINOCORT [Concomitant]
  13. CELEXA [Concomitant]
  14. SPIRIVA [Concomitant]
  15. MECLIZINE [Concomitant]
  16. MUCINEX [Concomitant]
  17. XOPENEX [Concomitant]
  18. MEDROL [Concomitant]
  19. XALATAN [Concomitant]
  20. AVELOX [Concomitant]

REACTIONS (1)
  - DEATH [None]
